FAERS Safety Report 21921902 (Version 2)
Quarter: 2023Q1

REPORT INFORMATION
  Report Type: Spontaneous
  Country: CH (occurrence: CH)
  Receive Date: 20230127
  Receipt Date: 20230131
  Transmission Date: 20230418
  Serious: Yes (Hospitalization, Other)
  Sender: FDA-Public Use
  Company Number: CH-SM-2022-19479

PATIENT
  Age: 37 Year
  Sex: Female

DRUGS (23)
  1. YESCARTA [Suspect]
     Active Substance: AXICABTAGENE CILOLEUCEL
     Indication: Product used for unknown indication
     Dosage: YESCARTA? (CAR-T-ZELL THERAPIE, AXICABTAGEN-CILOLEUCEL) I.V. AM 22.07.2022
     Route: 042
     Dates: start: 20220722, end: 20220722
  2. PROPOFOL [Suspect]
     Active Substance: PROPOFOL
     Indication: Product used for unknown indication
     Dosage: PROPOFOL I.V. VOM 20.07.2022 BIS AM 06.08.2022
     Route: 042
     Dates: start: 20220720, end: 20220806
  3. DAFALGAN [Suspect]
     Active Substance: ACETAMINOPHEN
     Indication: Product used for unknown indication
     Dosage: DAFALGAN? (PARACETAMOL) VOM 15.07.2022 BIS AM 08.08.2022
     Route: 065
     Dates: start: 20220715, end: 20220808
  4. PIPERACILLIN SODIUM\TAZOBACTAM SODIUM [Suspect]
     Active Substance: PIPERACILLIN SODIUM\TAZOBACTAM SODIUM
     Indication: Product used for unknown indication
     Dosage: PIPERACILLIN/TAZOBACTAM I.V. VOM 24.07.2022 BIS AM 03.08.2022
     Route: 042
     Dates: start: 20220724, end: 20220803
  5. KETALAR [Suspect]
     Active Substance: KETAMINE HYDROCHLORIDE
     Indication: Product used for unknown indication
     Dosage: KETALAR? (KETAMIN) I.V. VOM 21.07.2022 BIS AM 03.08.2022
     Route: 042
     Dates: start: 20220721, end: 20220803
  6. DIFLUCAN [Suspect]
     Active Substance: FLUCONAZOLE
     Indication: Product used for unknown indication
     Dosage: DIFLUCAN? (FLUCONAZOL) I.V. AM 19.07.2022
     Route: 042
     Dates: start: 20220719, end: 20220719
  7. ACTEMRA [Suspect]
     Active Substance: TOCILIZUMAB
     Indication: Product used for unknown indication
     Dosage: ACTEMRA? (TOCILIZUMAB) I.V. 23.07.2022 BIS 25.07.2022
     Route: 042
     Dates: start: 20220723, end: 20220725
  8. ERYTHROMYCIN [Suspect]
     Active Substance: ERYTHROMYCIN
     Indication: Product used for unknown indication
     Dosage: ERYTHROCIN? (ERYTHROMYCIN) I.V. VOM 26.07.2022 BIS AM 29.07.2022
     Route: 042
     Dates: start: 20220726, end: 20220729
  9. METAMIZOLE [Concomitant]
     Active Substance: METAMIZOLE
     Indication: Product used for unknown indication
     Dosage: METAMIZOL (MINALGIN) BEI SPITALAUSTRITT AM 26.09.2022 BIS AUF WEITERES
     Route: 065
     Dates: start: 20220926
  10. DEXAMETHASONE ACETATE [Concomitant]
     Active Substance: DEXAMETHASONE ACETATE
     Dosage: 20-30 MG QD, DEXAMETHASON (FORTECORTIN) BEI SPITALAUSTRITT AM 26.09.2022 BIS AUF WEITERES
     Route: 065
     Dates: start: 20220926
  11. BACTRIM [Concomitant]
     Active Substance: SULFAMETHOXAZOLE\TRIMETHOPRIM
     Dosage: TRIMETHOPRIM/SULFAMETHOXAZOL (BACTRIM FORTE) BEI SPITALAUSTRITT AM 26.09.2022 BIS AUF WEITERES
     Route: 065
     Dates: start: 20220926
  12. NEXIUM I.V. [Concomitant]
     Active Substance: ESOMEPRAZOLE SODIUM
     Dosage: ESOMEPRAZOL (NEXIUM) BEI SPITALAUSTRITT AM 26.09.2022 BIS AUF WEITERES
     Route: 065
     Dates: start: 20220926
  13. TOPAMAX [Concomitant]
     Active Substance: TOPIRAMATE
     Dosage: TOPAMAX? (TOPIRAMAT) BEI SPITALAUSTRITT AM 26.09.2022 BIS AUF WEITERES
     Route: 065
     Dates: start: 20220926
  14. ESCITALOPRAM OXALATE [Concomitant]
     Active Substance: ESCITALOPRAM OXALATE
     Dosage: ESCITALOPRAM MEPHA? (ESCITALOPRAM) BEI SPITALAUSTRITT AM 26.09.2022 BIS AUF WEITERES
     Route: 065
     Dates: start: 20220926
  15. LACOSAMIDUM [Concomitant]
     Dosage: LACOSAMID BEI SPITALAUSTRITT AM 26.09.2022 BIS AUF WEITERES
     Route: 065
     Dates: start: 20220926
  16. CLONAZEPAM [Concomitant]
     Active Substance: CLONAZEPAM
     Dosage: CLONAZEPAM AM 20.07.2022
     Route: 065
     Dates: start: 20220720, end: 20220720
  17. ONDANSETRON [Concomitant]
     Active Substance: ONDANSETRON
     Dosage: ONDANSETRON BEI SPITALAUSTRITT AM 26.09.2022 BIS AUF WEITERES
     Route: 065
     Dates: start: 20220926
  18. ZOLPIDEM [Concomitant]
     Active Substance: ZOLPIDEM TARTRATE
     Dosage: ZOLPIDEM VOM 15.07.2022 BIS AM 19.07.2022
     Route: 065
     Dates: start: 20220715, end: 20220719
  19. CLEMASTINE [Concomitant]
     Active Substance: CLEMASTINE
     Dosage: CLEMASTIN AM 19.07.2022
     Route: 065
     Dates: start: 20220719, end: 20220719
  20. BRIVIACT [Concomitant]
     Active Substance: BRIVARACETAM
     Dosage: BRIVIACT? (BRIVARACETAM) BEI SPITALAUSTRITT AM 26.09.2022 BIS AUF WEITERES
     Route: 065
     Dates: start: 20220926
  21. FYCOMPA [Concomitant]
     Active Substance: PERAMPANEL
     Dosage: FYCOMPA? (PERAMPANEL) BEI SPITALAUSTRITT AM 26.09.2022 BIS AUF WEITERES
     Route: 065
     Dates: start: 20220926
  22. OLANZAPINE [Concomitant]
     Active Substance: OLANZAPINE
     Dosage: OLANZAPIN AM 16.07.2022 UND AM 20.07.2022
     Route: 065
     Dates: start: 20220716, end: 20220720
  23. MIDAZOLAM [Concomitant]
     Active Substance: MIDAZOLAM

REACTIONS (4)
  - Drug-induced liver injury [Recovering/Resolving]
  - Pancreatitis [Recovering/Resolving]
  - Leukoencephalopathy [Not Recovered/Not Resolved]
  - Cytokine release syndrome [Recovering/Resolving]

NARRATIVE: CASE EVENT DATE: 20220724
